FAERS Safety Report 5858458-7 (Version None)
Quarter: 2008Q3

REPORT INFORMATION
  Report Type: 
  Country: None (occurrence: None)
  Receive Date: 20080826
  Receipt Date: 20080819
  Transmission Date: 20090109
  Serious: Yes (Hospitalization)
  Sender: FDA-Public Use
  Company Number: US-KINGPHARMUSA00001-K200800984

PATIENT

DRUGS (3)
  1. AVINZA [Suspect]
     Dosage: }1000 MG, SINGLE
     Route: 048
     Dates: start: 20080813, end: 20080813
  2. HYZAAR                             /01284801/ [Concomitant]
     Dosage: UNK, QD
  3. BYSTOLIC [Concomitant]
     Dosage: UNK, UNK

REACTIONS (4)
  - DRUG ABUSER [None]
  - DRUG DIVERSION [None]
  - OVERDOSE [None]
  - SUICIDE ATTEMPT [None]
